FAERS Safety Report 4589807-8 (Version None)
Quarter: 2005Q1

REPORT INFORMATION
  Report Type: 
  Country: None (occurrence: None)
  Receive Date: 20050223
  Receipt Date: 20050215
  Transmission Date: 20050727
  Serious: Yes (Death)
  Sender: FDA-Public Use
  Company Number: UG-GLAXOSMITHKLINE-B0371681A

PATIENT
  Age: 17 Month
  Sex: Male
  Weight: 10 kg

DRUGS (2)
  1. ALBENDAZOLE [Suspect]
     Indication: HELMINTHIC INFECTION
     Dosage: 200MG SINGLE DOSE
     Route: 048
     Dates: start: 20041126
  2. PRAZIQUANTEL [Suspect]
     Indication: HELMINTHIC INFECTION
     Dosage: 40MGK SINGLE DOSE

REACTIONS (25)
  - ABDOMINAL DISTENSION [None]
  - ANAEMIA [None]
  - CONJUNCTIVITIS [None]
  - COUGH [None]
  - DEATH [None]
  - DEHYDRATION [None]
  - DIARRHOEA [None]
  - DRUG EXPOSURE DURING PREGNANCY [None]
  - DYSURIA [None]
  - GENERALISED OEDEMA [None]
  - HAEMATOCHEZIA [None]
  - HAEMOLYTIC URAEMIC SYNDROME [None]
  - IRRITABILITY [None]
  - OEDEMA [None]
  - ORAL CANDIDIASIS [None]
  - PALLOR [None]
  - PENILE PAIN [None]
  - PLASMODIUM FALCIPARUM INFECTION [None]
  - PLATELET COUNT DECREASED [None]
  - PYREXIA [None]
  - RENAL DISORDER [None]
  - RESTLESSNESS [None]
  - RHINITIS [None]
  - SWELLING [None]
  - VOMITING [None]
